FAERS Safety Report 7760733-6 (Version None)
Quarter: 2011Q3

REPORT INFORMATION
  Report Type: 
  Country: None (occurrence: None)
  Receive Date: 20110919
  Receipt Date: 20110912
  Transmission Date: 20111222
  Serious: Yes (Hospitalization)
  Sender: FDA-Public Use
  Company Number: US-B.I. PHARMACEUTICALS,INC./RIDGEFIELD-2009-BP-06887BP

PATIENT
  Sex: Female

DRUGS (10)
  1. CARDIZEM [Concomitant]
     Dosage: 240 MG
  2. SPIRIVA [Suspect]
     Indication: EMPHYSEMA
     Dosage: 18 MCG
     Route: 055
     Dates: start: 20040101
  3. RESTASIS [Concomitant]
  4. SINGULAIR [Concomitant]
     Dosage: 10 MG
  5. NITROGLYCERIN [Concomitant]
  6. FEXOFENADINE [Concomitant]
     Indication: HYPERSENSITIVITY
  7. ASPIRIN [Concomitant]
     Dosage: 81 MG
  8. SPIRIVA [Suspect]
     Indication: CHRONIC OBSTRUCTIVE PULMONARY DISEASE
  9. ADVAIR DISKUS 100/50 [Concomitant]
     Indication: CHRONIC OBSTRUCTIVE PULMONARY DISEASE
  10. ATROVENT [Concomitant]

REACTIONS (3)
  - EYE PAIN [None]
  - PHLEBITIS [None]
  - BLADDER PROLAPSE [None]
